FAERS Safety Report 4608124-0 (Version None)
Quarter: 2005Q2

REPORT INFORMATION
  Report Type: 
  Country: None (occurrence: None)
  Receive Date: 20050312
  Receipt Date: 20040217
  Transmission Date: 20051028
  Serious: Yes (Other)
  Sender: FDA-Public Use
  Company Number: BDI-005843

PATIENT
  Age: 10 Year
  Sex: Female
  Weight: 50 kg

DRUGS (2)
  1. ISOVUE-300 [Suspect]
     Indication: HEADACHE
     Dosage: 100 ML ONCE IV
     Route: 042
     Dates: start: 20040213, end: 20040213
  2. ISOVUE-300 [Suspect]
     Indication: SCAN BRAIN
     Dosage: 100 ML ONCE IV
     Route: 042
     Dates: start: 20040213, end: 20040213

REACTIONS (1)
  - ANAPHYLACTOID REACTION [None]
